FAERS Safety Report 10588478 (Version 1)
Quarter: 2014Q4

REPORT INFORMATION
  Report Type: Spontaneous
  Country: US (occurrence: US)
  Receive Date: 20141117
  Receipt Date: 20141117
  Transmission Date: 20150529
  Serious: Yes (Death, Hospitalization)
  Sender: FDA-Public Use
  Company Number: US-PFIZER INC-2014315129

PATIENT
  Age: 70 Year
  Sex: Male
  Weight: 67 kg

DRUGS (13)
  1. DILANTIN [Suspect]
     Active Substance: PHENYTOIN
     Indication: SEIZURE
     Dosage: 100 MG, 3X/DAY
     Route: 048
  2. DILANTIN [Suspect]
     Active Substance: PHENYTOIN
     Dosage: UNK
  3. PRAVASTATIN [Concomitant]
     Active Substance: PRAVASTATIN\PRAVASTATIN SODIUM
  4. ERYTHROMYCIN EYE DROPS [Concomitant]
  5. DILANTIN [Suspect]
     Active Substance: PHENYTOIN
     Dosage: UNK
  6. FLONASE [Concomitant]
     Active Substance: FLUTICASONE PROPIONATE
  7. FLOMAX [Concomitant]
     Active Substance: TAMSULOSIN HYDROCHLORIDE
  8. FOSAMAX [Concomitant]
     Active Substance: ALENDRONATE SODIUM
  9. DILANTIN [Suspect]
     Active Substance: PHENYTOIN
     Dosage: UNK
  10. TRILEPTAL [Concomitant]
     Active Substance: OXCARBAZEPINE
  11. SYNTHROID [Concomitant]
     Active Substance: LEVOTHYROXINE SODIUM
  12. CALCIUM [Concomitant]
     Active Substance: CALCIUM
  13. LAMICTAL [Concomitant]
     Active Substance: LAMOTRIGINE

REACTIONS (5)
  - Pneumonia [Fatal]
  - Cardiac arrest [Fatal]
  - Anaemia [Fatal]
  - Dyspnoea [Not Recovered/Not Resolved]
  - Disease progression [Not Recovered/Not Resolved]
